FAERS Safety Report 17144484 (Version 1)
Quarter: 2019Q4

REPORT INFORMATION
  Report Type: Spontaneous
  Country: US (occurrence: US)
  Receive Date: 20191212
  Receipt Date: 20191212
  Transmission Date: 20200122
  Serious: No
  Sender: FDA-Public Use
  Company Number: US-GLAXOSMITHKLINE-US2019223825

PATIENT
  Sex: Female

DRUGS (1)
  1. NICORETTE WHITE ICE MINT [Suspect]
     Active Substance: NICOTINE
     Indication: SMOKING CESSATION THERAPY
     Dosage: 4 MG
     Dates: start: 2017

REACTIONS (4)
  - Product package associated injury [Unknown]
  - Nicotine dependence [Unknown]
  - Product complaint [Unknown]
  - Skin laceration [Unknown]
